FAERS Safety Report 13185545 (Version 3)
Quarter: 2018Q1

REPORT INFORMATION
  Report Type: Report from Study
  Country: US (occurrence: US)
  Receive Date: 20170203
  Receipt Date: 20180220
  Transmission Date: 20180508
  Serious: Yes (Death)
  Sender: FDA-Public Use
  Company Number: US-BAUSCH-BL-2017-002655

PATIENT
  Sex: Female

DRUGS (1)
  1. EDECRIN [Suspect]
     Active Substance: ETHACRYNIC ACID
     Indication: PRODUCT USED FOR UNKNOWN INDICATION
     Dosage: TWO 25 MG TABLETS ORALLY EVERY MORNING AND 2 TABLETS DAILY AT NOON
     Route: 048

REACTIONS (1)
  - Death [Fatal]
